FAERS Safety Report 9502465 (Version 1)
Quarter: 2013Q3

REPORT INFORMATION
  Report Type: Spontaneous
  Country: GB (occurrence: GB)
  Receive Date: 20130906
  Receipt Date: 20130906
  Transmission Date: 20140515
  Serious: Yes (Hospitalization)
  Sender: FDA-Public Use
  Company Number: GB-BRISTOL-MYERS SQUIBB COMPANY-19234228

PATIENT
  Age: 68 Year
  Sex: Male

DRUGS (3)
  1. PRAVASTATINE [Suspect]
     Dosage: TABS
     Route: 048
     Dates: start: 20121201
  2. AMLODIPINE [Suspect]
     Dosage: TABS
     Dates: start: 20121201
  3. RAMIPRIL [Suspect]
     Dosage: CAPS
     Route: 048
     Dates: start: 20121201

REACTIONS (2)
  - Immune thrombocytopenic purpura [Not Recovered/Not Resolved]
  - Mouth ulceration [Unknown]
